FAERS Safety Report 10040305 (Version 2)
Quarter: 2014Q2

REPORT INFORMATION
  Report Type: Spontaneous
  Country: BR (occurrence: BR)
  Receive Date: 20140327
  Receipt Date: 20140523
  Transmission Date: 20141212
  Serious: Yes (Hospitalization, Other)
  Sender: FDA-Public Use
  Company Number: BR-AMGEN-BRASP2014021792

PATIENT
  Age: 30 Year
  Sex: Male
  Weight: 64 kg

DRUGS (2)
  1. ENBREL [Suspect]
     Indication: ANKYLOSING SPONDYLITIS
     Dosage: 50 MG, ONCE A WEEK
     Route: 058
     Dates: start: 20130830
  2. CEFALEXIN [Concomitant]
     Dosage: UNK

REACTIONS (4)
  - Lower limb fracture [Unknown]
  - Road traffic accident [Unknown]
  - Excoriation [Recovered/Resolved]
  - Wound infection [Recovered/Resolved]
